FAERS Safety Report 6201845-8 (Version None)
Quarter: 2009Q2

REPORT INFORMATION
  Report Type: 
  Country: None (occurrence: None)
  Receive Date: 20090526
  Receipt Date: 20090513
  Transmission Date: 20091009
  Serious: Yes (Hospitalization)
  Sender: FDA-Public Use
  Company Number: BR-BIOGENIDEC-2009BI014684

PATIENT
  Age: 46 Year
  Sex: Female

DRUGS (3)
  1. AVONEX [Suspect]
     Indication: MULTIPLE SCLEROSIS
     Route: 030
     Dates: start: 20060117, end: 20080701
  2. TRYPTANOL [Concomitant]
     Indication: DRUG USE FOR UNKNOWN INDICATION
  3. UNSPECIFIED MEDICINE [Concomitant]
     Indication: DIABETES MELLITUS

REACTIONS (3)
  - BIPOLAR DISORDER [None]
  - INFLUENZA LIKE ILLNESS [None]
  - SUICIDE ATTEMPT [None]
